FAERS Safety Report 6972268-9 (Version None)
Quarter: 2010Q3

REPORT INFORMATION
  Report Type: 
  Country: None (occurrence: None)
  Receive Date: 20100909
  Receipt Date: 20100907
  Transmission Date: 20110219
  Serious: Yes (Other)
  Sender: FDA-Public Use
  Company Number: JP-JNJFOC-20100208592

PATIENT
  Age: 56 Year
  Sex: Female

DRUGS (13)
  1. LEVOFLOXACIN [Suspect]
     Indication: PRODUCT USED FOR UNKNOWN INDICATION
     Route: 048
  2. CAFFEINE [Concomitant]
     Route: 065
  3. SALICYLAMIDE [Concomitant]
     Route: 065
  4. ACETAMINOPHEN [Concomitant]
     Route: 065
  5. PROMETHAZINE [Concomitant]
     Route: 065
  6. DOGMATYL [Concomitant]
     Route: 065
  7. RIZE [Concomitant]
     Route: 065
  8. AMOBAN [Concomitant]
     Route: 065
  9. PANTOSIN [Concomitant]
     Route: 065
  10. MAGNESIUM OXIDE [Concomitant]
     Route: 065
  11. ONON [Concomitant]
     Route: 065
  12. ALLELOCK [Concomitant]
     Route: 065
  13. CLOPERASTINE HYDROCHLORIDE [Concomitant]
     Route: 065

REACTIONS (1)
  - LOSS OF CONSCIOUSNESS [None]
